FAERS Safety Report 20088948 (Version 1)
Quarter: 2021Q4

REPORT INFORMATION
  Report Type: Spontaneous
  Country: US (occurrence: US)
  Receive Date: 20211119
  Receipt Date: 20211119
  Transmission Date: 20220303
  Serious: No
  Sender: FDA-Public Use
  Company Number: US-DECIPHERA PHARMACEUTICALS LLC-2021US000903

PATIENT
  Sex: Female

DRUGS (1)
  1. QINLOCK [Suspect]
     Active Substance: RIPRETINIB
     Indication: Gastric cancer
     Dosage: 100 MILLIGRAM, QD
     Route: 048
     Dates: start: 202008

REACTIONS (4)
  - Pain in jaw [Unknown]
  - Temporomandibular joint syndrome [Unknown]
  - Urinary tract infection [Unknown]
  - Nausea [Unknown]

NARRATIVE: CASE EVENT DATE: 20210101
